FAERS Safety Report 22614086 (Version 1)
Quarter: 2023Q2

REPORT INFORMATION
  Report Type: Report from Study
  Country: US (occurrence: US)
  Receive Date: 20230619
  Receipt Date: 20230619
  Transmission Date: 20230721
  Serious: Yes (Hospitalization)
  Sender: FDA-Public Use
  Company Number: US-ABBVIE-22K-163-4451618-00

PATIENT
  Sex: Male

DRUGS (1)
  1. SKYRIZI [Suspect]
     Active Substance: RISANKIZUMAB-RZAA
     Indication: Psoriasis
     Dosage: 150MG FORM STRENGTH
     Route: 058
     Dates: start: 20220422

REACTIONS (3)
  - Pancreatitis [Recovered/Resolved]
  - Psoriasis [Not Recovered/Not Resolved]
  - Renal impairment [Recovered/Resolved]
